FAERS Safety Report 8577195-1 (Version None)
Quarter: 2012Q3

REPORT INFORMATION
  Report Type: 
  Country: None (occurrence: None)
  Receive Date: 20120807
  Receipt Date: 20120724
  Transmission Date: 20120928
  Serious: Yes (Hospitalization)
  Sender: FDA-Public Use
  Company Number: DE-BAXTER-2009BH005981

PATIENT
  Sex: Female
  Weight: 59 kg

DRUGS (26)
  1. PHYSIOSOL IN PLASTIC CONTAINER [Suspect]
  2. VIGANTOL [Concomitant]
     Route: 065
  3. CALCIUM ACETATE [Concomitant]
     Route: 065
  4. CINACALCET HYDROCHLORIDE [Concomitant]
     Dosage: 0-0-1
     Route: 048
  5. PHYSIOSOL IN PLASTIC CONTAINER [Suspect]
  6. PREDNISOLONE [Concomitant]
     Route: 065
  7. ATACAND [Concomitant]
     Route: 065
  8. NEBIVOLOL HCL [Concomitant]
     Dosage: 0-0-0.5
     Route: 048
  9. CALCIUM CARBONATE [Concomitant]
     Dosage: 500   1-1-1
     Route: 048
  10. OMEPRAZOLE [Concomitant]
     Dosage: 0-0-1
     Route: 048
  11. FERRLECIT [Concomitant]
     Dosage: 31.25 WEEKLY
     Route: 065
  12. ARANESP [Concomitant]
     Dosage: 60-80 MCG ONCE WEEKLY
     Route: 065
  13. FERRUM HAUSMANN [Concomitant]
     Route: 065
  14. PHYSIOSOL IN PLASTIC CONTAINER [Suspect]
     Indication: PERITONEAL DIALYSIS
     Route: 033
     Dates: start: 20020315, end: 20020830
  15. DECOSTRIOL [Concomitant]
     Dosage: 3 PER DAY
     Route: 065
  16. DIPYRONE TAB [Concomitant]
     Route: 048
  17. EXTRANEAL [Suspect]
  18. DEKRISTOL [Concomitant]
     Dosage: ONCE WEEKLY
     Route: 048
  19. BUSCOPAN PLUS [Concomitant]
     Route: 065
  20. ZEMPLAR [Concomitant]
     Route: 065
  21. EXTRANEAL [Suspect]
     Indication: PERITONEAL DIALYSIS
     Route: 033
     Dates: start: 20020315, end: 20090406
  22. PHYSIOSOL IN PLASTIC CONTAINER [Suspect]
     Indication: PERITONEAL DIALYSIS
     Route: 033
     Dates: start: 20020315, end: 20090406
  23. VITARENAL [Concomitant]
     Route: 065
  24. AMLODIPINE [Concomitant]
     Route: 065
  25. FUROSEMIDE ^RATIOPHARM^ [Concomitant]
     Route: 065
  26. FOSRENOL [Concomitant]
     Dosage: 1-1-1
     Route: 048

REACTIONS (4)
  - SKIN IRRITATION [None]
  - PERITONITIS SCLEROSING [None]
  - DYSPNOEA [None]
  - CHEST DISCOMFORT [None]
